FAERS Safety Report 23930387 (Version 1)
Quarter: 2024Q2

REPORT INFORMATION
  Report Type: Spontaneous
  Country: FR (occurrence: FR)
  Receive Date: 20240602
  Receipt Date: 20240602
  Transmission Date: 20240716
  Serious: Yes (Hospitalization, Other)
  Sender: FDA-Public Use
  Company Number: FR-BAYER-2024A078788

PATIENT
  Age: 81 Year
  Sex: Female

DRUGS (8)
  1. XARELTO [Suspect]
     Active Substance: RIVAROXABAN
     Indication: Product used for unknown indication
     Dosage: 20 MG
     Route: 048
     Dates: start: 202309
  2. CORDARONE [Concomitant]
     Active Substance: AMIODARONE HYDROCHLORIDE
  3. FLECAINIDE [Concomitant]
     Active Substance: FLECAINIDE
  4. ENTRESTO [Concomitant]
     Active Substance: SACUBITRIL\VALSARTAN
  5. FUROSEMIDE [Concomitant]
     Active Substance: FUROSEMIDE
     Dosage: 40 MG
  6. FUROSEMIDE [Concomitant]
     Active Substance: FUROSEMIDE
     Dosage: 20 MG
  7. BISOPROLOL FUMARATE [Concomitant]
     Active Substance: BISOPROLOL FUMARATE
     Dosage: 1.25 MG
  8. FLUINDIONE [Concomitant]
     Active Substance: FLUINDIONE
     Dosage: UNK

REACTIONS (6)
  - Duodenal ulcer haemorrhage [Recovered/Resolved]
  - Atrial fibrillation [Unknown]
  - Haemoglobin decreased [Unknown]
  - Rectal haemorrhage [Recovered/Resolved]
  - Dyspnoea [Unknown]
  - Fatigue [Unknown]

NARRATIVE: CASE EVENT DATE: 20240524
